FAERS Safety Report 8027932-X (Version None)
Quarter: 2012Q1

REPORT INFORMATION
  Report Type: 
  Country: None (occurrence: None)
  Receive Date: 20120106
  Receipt Date: 20120104
  Transmission Date: 20120608
  Serious: Yes (Hospitalization)
  Sender: FDA-Public Use
  Company Number: US-B.I. PHARMACEUTICALS,INC./RIDGEFIELD-2012-BP-00205BP

PATIENT
  Age: 7 Decade
  Sex: Male

DRUGS (2)
  1. ANTIHYPERGLYCEMIC MEDICATIONS [Concomitant]
     Indication: DIABETES MELLITUS
  2. PRADAXA [Suspect]
     Indication: ATRIAL FIBRILLATION
     Dosage: 300 MG
     Route: 048
     Dates: start: 20111101, end: 20111201

REACTIONS (3)
  - HYPOGLYCAEMIA [None]
  - DECREASED APPETITE [None]
  - WEIGHT DECREASED [None]
